FAERS Safety Report 6520605-1 (Version None)
Quarter: 2009Q4

REPORT INFORMATION
  Report Type: 
  Country: None (occurrence: None)
  Receive Date: 20091229
  Receipt Date: 20091218
  Transmission Date: 20100525
  Serious: Yes (Hospitalization)
  Sender: FDA-Public Use
  Company Number: IT-ELI_LILLY_AND_COMPANY-IT200912004197

PATIENT
  Sex: Male

DRUGS (5)
  1. GEMZAR [Suspect]
     Indication: LUNG NEOPLASM MALIGNANT
     Dosage: 1300 MG, OTHER (PER CYCLE)
     Route: 042
     Dates: start: 20091104, end: 20091125
  2. CARBOPLATIN [Concomitant]
     Indication: LUNG NEOPLASM MALIGNANT
     Dosage: 260 MG, OTHER (PER CYCLE)
     Route: 042
     Dates: start: 20091104, end: 20091125
  3. KYTRIL [Concomitant]
  4. DECADRON /CAN/ [Concomitant]
  5. NORVASC [Concomitant]
     Indication: HYPERTENSION

REACTIONS (2)
  - PULMONARY EMBOLISM [None]
  - SUPRAVENTRICULAR TACHYCARDIA [None]
